FAERS Safety Report 16115200 (Version 2)
Quarter: 2019Q2

REPORT INFORMATION
  Report Type: Spontaneous
  Country: NL (occurrence: NL)
  Receive Date: 20190325
  Receipt Date: 20190419
  Transmission Date: 20190711
  Serious: Yes (Other)
  Sender: FDA-Public Use
  Company Number: NL-PFIZER INC-2019121335

PATIENT
  Sex: Female
  Weight: 67.5 kg

DRUGS (3)
  1. PREGABALIN. [Suspect]
     Active Substance: PREGABALIN
     Indication: POLYNEUROPATHY
     Dosage: 75 MG, 2X/DAY
     Route: 050
  2. GRAVITAMON [Concomitant]
     Dosage: 1 DF, 1X/DAY
     Route: 050
     Dates: end: 20190222
  3. PROGESTERON [Concomitant]
     Active Substance: PROGESTERONE
     Dosage: 100 MG, 1X/DAY
     Route: 048

REACTIONS (1)
  - Premature labour [Recovering/Resolving]
